FAERS Safety Report 24878768 (Version 1)
Quarter: 2025Q1

REPORT INFORMATION
  Report Type: Spontaneous
  Country: US (occurrence: None)
  Receive Date: 20250123
  Receipt Date: 20250123
  Transmission Date: 20250408
  Serious: Yes (Life-Threatening, Other)
  Sender: FDA-CTU
  Company Number: None

PATIENT
  Age: 75 Year
  Sex: Female
  Weight: 63 kg

DRUGS (1)
  1. ERBITUX [Suspect]
     Active Substance: CETUXIMAB
     Route: 042
     Dates: start: 20250115, end: 20250115

REACTIONS (7)
  - Infusion related reaction [None]
  - Swelling face [None]
  - Lip swelling [None]
  - Pruritus [None]
  - Heart rate increased [None]
  - Aphasia [None]
  - Erythema [None]

NARRATIVE: CASE EVENT DATE: 20250115
